FAERS Safety Report 25049475 (Version 1)
Quarter: 2025Q1

REPORT INFORMATION
  Report Type: Spontaneous
  Country: US (occurrence: US)
  Receive Date: 20250307
  Receipt Date: 20250307
  Transmission Date: 20250408
  Serious: Yes (Hospitalization, Other)
  Sender: COOPERSURGICAL
  Company Number: US-COOPERSURGICAL, INC.-2025CPS001449

PATIENT
  Age: 26 Year
  Sex: Female
  Weight: 72.562 kg

DRUGS (1)
  1. PARAGARD T 380A [Suspect]
     Active Substance: COPPER
     Indication: Contraception
     Route: 015
     Dates: start: 20190405

REACTIONS (18)
  - Reproductive complication associated with device [Not Recovered/Not Resolved]
  - Oophorectomy [Recovered/Resolved]
  - Bipolar disorder [Not Recovered/Not Resolved]
  - Tubo-ovarian abscess [Recovered/Resolved]
  - Pelvic abscess [Unknown]
  - Uterine perforation [Recovered/Resolved]
  - Pelvic inflammatory disease [Not Recovered/Not Resolved]
  - Foreign body in reproductive tract [Unknown]
  - Complication of device removal [Unknown]
  - Device material issue [Recovered/Resolved]
  - Scar [Not Recovered/Not Resolved]
  - Post-traumatic stress disorder [Not Recovered/Not Resolved]
  - Sexual dysfunction [Not Recovered/Not Resolved]
  - Depression [Not Recovered/Not Resolved]
  - Anxiety [Not Recovered/Not Resolved]
  - Fear [Not Recovered/Not Resolved]
  - Attention deficit hyperactivity disorder [Not Recovered/Not Resolved]
  - Abdominal pain [Recovered/Resolved]

NARRATIVE: CASE EVENT DATE: 20201011
